FAERS Safety Report 23246855 (Version 1)
Quarter: 2023Q4

REPORT INFORMATION
  Report Type: Spontaneous
  Country: CN (occurrence: CN)
  Receive Date: 20231130
  Receipt Date: 20231130
  Transmission Date: 20240110
  Serious: Yes (Life-Threatening)
  Sender: FDA-Public Use
  Company Number: CN-GE HEALTHCARE-2023CSU010766

PATIENT
  Age: 37 Year
  Sex: Female
  Weight: 60 kg

DRUGS (2)
  1. VISIPAQUE [Suspect]
     Active Substance: IODIXANOL
     Indication: Scan thyroid gland
     Dosage: 60 ML, 3 ML/SEC, ONCE
     Route: 042
     Dates: start: 20231121, end: 20231121
  2. VISIPAQUE [Suspect]
     Active Substance: IODIXANOL
     Indication: Thyroid mass

REACTIONS (6)
  - Pallor [Recovered/Resolved]
  - Pulse absent [Recovered/Resolved]
  - Blood pressure immeasurable [Recovered/Resolved]
  - Oxygen saturation immeasurable [Recovered/Resolved]
  - Loss of consciousness [Recovered/Resolved]
  - Discomfort [Recovered/Resolved]

NARRATIVE: CASE EVENT DATE: 20231121
